FAERS Safety Report 24584747 (Version 1)
Quarter: 2024Q4

REPORT INFORMATION
  Report Type: Spontaneous
  Country: US (occurrence: US)
  Receive Date: 20241106
  Receipt Date: 20241106
  Transmission Date: 20250115
  Serious: Yes (Other)
  Sender: COVIS PHARMA GMBH
  Company Number: US-Covis Pharma Europe B.V.-2024COV01285

PATIENT
  Age: 75 Year
  Sex: Female

DRUGS (1)
  1. ALVESCO [Suspect]
     Active Substance: CICLESONIDE
     Indication: Asthma
     Dosage: 1 PUFF ONCE DAILY

REACTIONS (5)
  - Pneumonia [Not Recovered/Not Resolved]
  - Sinusitis [Not Recovered/Not Resolved]
  - Bronchitis [Not Recovered/Not Resolved]
  - Incorrect dose administered by product [Unknown]
  - Wheezing [Not Recovered/Not Resolved]
